FAERS Safety Report 17328992 (Version 1)
Quarter: 2020Q1

REPORT INFORMATION
  Report Type: Spontaneous
  Country: FR (occurrence: FR)
  Receive Date: 20200127
  Receipt Date: 20200127
  Transmission Date: 20200409
  Serious: Yes (Hospitalization)
  Sender: FDA-Public Use
  Company Number: FR-009507513-2001FRA007232

PATIENT
  Age: 72 Year
  Sex: Female

DRUGS (3)
  1. ACETAMINOPHEN. [Suspect]
     Active Substance: ACETAMINOPHEN
     Indication: PAIN
     Dosage: UNK (NOT STATED)
     Route: 048
     Dates: start: 20190908
  2. KEYTRUDA [Suspect]
     Active Substance: PEMBROLIZUMAB
     Indication: ENDOMETRIAL CANCER
     Dosage: 200 MILLIGRAM, ONCE, TOTAL, FORMULATION: POWDER FOR SOLUTION TO DILUTE FOR INFUSION
     Route: 041
     Dates: start: 20190813, end: 20190813
  3. OPDIVO [Suspect]
     Active Substance: NIVOLUMAB
     Indication: ENDOMETRIAL CANCER
     Dosage: 3 MILLIGRAM/KILOGRAM, ONCE, TOTAL, STRENGTH: 10 MG/ML, FORMULATION: SOLUTION TO DILUTE FOR INFUSION
     Route: 041
     Dates: start: 20190904, end: 20190904

REACTIONS (3)
  - Cholestasis [Recovered/Resolved]
  - Hepatitis [Recovered/Resolved]
  - Hepatocellular injury [Recovered/Resolved]

NARRATIVE: CASE EVENT DATE: 20190916
